FAERS Safety Report 18159438 (Version 1)
Quarter: 2020Q3

REPORT INFORMATION
  Report Type: Spontaneous
  Country: US (occurrence: US)
  Receive Date: 20200818
  Receipt Date: 20200818
  Transmission Date: 20201103
  Serious: No
  Sender: FDA-Public Use
  Company Number: US-JNJFOC-20200805159

PATIENT
  Age: 60 Year
  Sex: Female
  Weight: 63.56 kg

DRUGS (1)
  1. MENS ROGAINE EXTRA STRENGTH [Suspect]
     Active Substance: MINOXIDIL
     Indication: ALOPECIA
     Dosage: DOSE AND FREQUENCY: HALF A CUP AND 3X A WEEK.?THE PRODUCT WAS LAST USED ON 20/JUL/2020. THE PATIENT
     Route: 061
     Dates: start: 20200510

REACTIONS (4)
  - Application site exfoliation [Recovered/Resolved]
  - Drug hypersensitivity [Recovered/Resolved]
  - Product use issue [Unknown]
  - Intentional product misuse [Unknown]

NARRATIVE: CASE EVENT DATE: 20200510
